FAERS Safety Report 25743385 (Version 3)
Quarter: 2025Q4

REPORT INFORMATION
  Report Type: Spontaneous
  Country: US (occurrence: US)
  Receive Date: 20250830
  Receipt Date: 20251001
  Transmission Date: 20260117
  Serious: Yes (Other)
  Sender: AMGEN
  Company Number: US-AMGEN-USASP2025169982

PATIENT
  Age: 64 Year
  Sex: Male
  Weight: 98.7 kg

DRUGS (13)
  1. REPATHA [Suspect]
     Active Substance: EVOLOCUMAB
     Indication: Blood cholesterol abnormal
     Dosage: 140 MILLIGRAM
     Route: 065
     Dates: start: 20250602, end: 202508
  2. REPATHA [Suspect]
     Active Substance: EVOLOCUMAB
     Indication: Blood cholesterol increased
  3. ZETIA [Concomitant]
     Active Substance: EZETIMIBE
     Indication: Blood cholesterol abnormal
     Dosage: UNK
     Route: 048
     Dates: start: 202201
  4. ZETIA [Concomitant]
     Active Substance: EZETIMIBE
     Dosage: 10 MILLIGRAM, QD
     Route: 048
     Dates: start: 20250604
  5. RESTASIS [Concomitant]
     Active Substance: CYCLOSPORINE
     Indication: Dry eye
     Dosage: UNK
     Route: 065
     Dates: start: 20240605
  6. BIOTIN [Concomitant]
     Active Substance: BIOTIN
     Indication: Dry eye
     Dosage: UNK
     Dates: start: 20150807
  7. CHOLECALCIFEROL [Concomitant]
     Active Substance: CHOLECALCIFEROL
     Indication: Dry eye
     Dosage: 5000 UNIT
     Route: 048
     Dates: start: 20160722
  8. GLUCOSAMINE [Concomitant]
     Active Substance: GLUCOSAMINE
     Dosage: 500 MG
     Route: 048
     Dates: start: 20160722
  9. MOBIC [Concomitant]
     Active Substance: MELOXICAM
     Dosage: 15 MILLIGRAM, QD
     Route: 048
     Dates: start: 20250723
  10. ROGAINE [Concomitant]
     Active Substance: MINOXIDIL
     Dosage: 5 %
     Route: 061
  11. VITAMINS [Concomitant]
     Active Substance: VITAMINS
     Dosage: 1 DOSAGE FORM
     Route: 048
     Dates: start: 20160722
  12. ALEVE [Concomitant]
     Active Substance: NAPROXEN SODIUM
     Dosage: 220 MILLIGRAM,A S NEEDED
     Route: 048
  13. HERBALS\SAW PALMETTO [Concomitant]
     Active Substance: HERBALS\SAW PALMETTO
     Dosage: 160-15 MG
     Dates: start: 20231102

REACTIONS (15)
  - Thoracic spinal stenosis [Unknown]
  - Cervical spinal stenosis [Unknown]
  - Peripheral sensorimotor neuropathy [Recovering/Resolving]
  - Low density lipoprotein decreased [Not Recovered/Not Resolved]
  - Vertigo [Not Recovered/Not Resolved]
  - Sleep disorder [Unknown]
  - Weight increased [Unknown]
  - Alopecia [Unknown]
  - Balance disorder [Unknown]
  - White matter lesion [Unknown]
  - Spinal osteoarthritis [Unknown]
  - Vertebral foraminal stenosis [Unknown]
  - Lumbar spinal stenosis [Unknown]
  - Muscle spasms [Unknown]
  - Blood pressure increased [Unknown]

NARRATIVE: CASE EVENT DATE: 20250820
